FAERS Safety Report 10159715 (Version 1)
Quarter: 2014Q2

REPORT INFORMATION
  Report Type: Spontaneous
  Country: US (occurrence: US)
  Receive Date: 20140508
  Receipt Date: 20140508
  Transmission Date: 20141212
  Serious: No
  Sender: FDA-Public Use
  Company Number: US-GLAXOSMITHKLINE-A1023072A

PATIENT
  Sex: Male

DRUGS (1)
  1. TYKERB [Suspect]
     Indication: PROSTATE CANCER
     Route: 048

REACTIONS (1)
  - Therapeutic response changed [Unknown]
